FAERS Safety Report 5208981-3 (Version None)
Quarter: 2007Q1

REPORT INFORMATION
  Report Type: 
  Country: None (occurrence: None)
  Receive Date: 20070116
  Receipt Date: 20070115
  Transmission Date: 20070707
  Serious: Yes (Hospitalization)
  Sender: FDA-Public Use
  Company Number: JP-JPN-A200605561

PATIENT
  Age: 61 Year
  Sex: Male
  Weight: 72 kg

DRUGS (1)
  1. ZEFIX [Suspect]
     Indication: HEPATITIS B
     Route: 048

REACTIONS (10)
  - ABDOMINAL DISTENSION [None]
  - ANAEMIA [None]
  - ASCITES [None]
  - HAEMATURIA [None]
  - HENOCH-SCHONLEIN PURPURA [None]
  - HEPATITIS B VIRUS [None]
  - JAUNDICE [None]
  - NEPHRITIS [None]
  - OEDEMA PERIPHERAL [None]
  - RENAL IMPAIRMENT [None]
